FAERS Safety Report 9976855 (Version 1)
Quarter: 2014Q1

REPORT INFORMATION
  Report Type: Report from Study
  Country: US (occurrence: US)
  Receive Date: 20140306
  Receipt Date: 20140306
  Transmission Date: 20141002
  Serious: No
  Sender: FDA-Public Use
  Company Number: US-ABBVIE-13P-163-1166158-00

PATIENT
  Age: 23 Year
  Sex: Male

DRUGS (2)
  1. HUMIRA [Suspect]
     Indication: PSORIASIS
     Dosage: 2 PENS ON DAY 1
     Route: 058
     Dates: start: 20131015, end: 20131015
  2. HUMIRA [Suspect]
     Dosage: 1 PEN ON DAY 8
     Route: 058

REACTIONS (2)
  - Pain [Unknown]
  - Myalgia [Unknown]
